FAERS Safety Report 8093133-2 (Version None)
Quarter: 2012Q1

REPORT INFORMATION
  Report Type: 
  Country: None (occurrence: None)
  Receive Date: 20120128
  Receipt Date: 20110929
  Transmission Date: 20120608
  Serious: No
  Sender: FDA-Public Use
  Company Number: US-ABBOTT-11P-163-0840568-00

PATIENT
  Sex: Female
  Weight: 74.91 kg

DRUGS (19)
  1. AMOXICILLIN [Suspect]
     Indication: PYREXIA
  2. VITAMIN D [Concomitant]
     Indication: VITAMIN SUPPLEMENTATION
  3. HUMIRA [Suspect]
     Dates: start: 20110725, end: 20110725
  4. AMOXICILLIN [Suspect]
     Indication: OROPHARYNGEAL PAIN
     Dates: start: 20110701
  5. AMOXICILLIN [Suspect]
     Indication: CHILLS
  6. ESTRAGEN/TESTOSTERONE [Concomitant]
     Indication: PRODUCT USED FOR UNKNOWN INDICATION
  7. ZANAFLEX [Concomitant]
     Indication: SLEEP DISORDER THERAPY
  8. KLONOPIN [Concomitant]
     Indication: PANIC ATTACK
  9. KLOR-CON [Concomitant]
     Indication: PRODUCT USED FOR UNKNOWN INDICATION
  10. TRIAMPTERENE [Concomitant]
     Indication: PRODUCT USED FOR UNKNOWN INDICATION
  11. POTASSIUM [Concomitant]
     Indication: SUPPLEMENTATION THERAPY
  12. ZANAFLEX [Concomitant]
     Indication: MUSCLE RELAXANT THERAPY
  13. IRON [Concomitant]
     Indication: MINERAL SUPPLEMENTATION
  14. HUMIRA [Suspect]
     Indication: CROHN'S DISEASE
     Dates: start: 20110429, end: 20110801
  15. UNNAMED NASAL SPRAY [Concomitant]
     Indication: PRODUCT USED FOR UNKNOWN INDICATION
     Route: 045
  16. CELEXA [Concomitant]
     Indication: DEPRESSION
  17. OMEPRAZOLE [Concomitant]
     Indication: PRODUCT USED FOR UNKNOWN INDICATION
  18. TIZINADINE [Concomitant]
     Indication: PRODUCT USED FOR UNKNOWN INDICATION
  19. VITAMIN B-12 [Concomitant]
     Indication: VITAMIN SUPPLEMENTATION

REACTIONS (13)
  - BLOOD TESTOSTERONE DECREASED [None]
  - OROPHARYNGEAL PAIN [None]
  - NASAL CONGESTION [None]
  - DIARRHOEA [None]
  - PAIN [None]
  - VOMITING [None]
  - PAIN IN EXTREMITY [None]
  - BLOOD OESTROGEN DECREASED [None]
  - WEIGHT DECREASED [None]
  - HEADACHE [None]
  - NAUSEA [None]
  - MALAISE [None]
  - HEPATIC ENZYME INCREASED [None]
